FAERS Safety Report 18920096 (Version 1)
Quarter: 2021Q1

REPORT INFORMATION
  Report Type: Spontaneous
  Country: NL (occurrence: NL)
  Receive Date: 20210222
  Receipt Date: 20210222
  Transmission Date: 20210420
  Serious: Yes (Hospitalization)
  Sender: FDA-Public Use
  Company Number: NL-TEVA-2021-NL-1881232

PATIENT
  Sex: Female
  Weight: 63 kg

DRUGS (12)
  1. SIMVASTATINE TABLET FO 20MG / BRAND NAME NOT SPECIFIED [Concomitant]
     Active Substance: SIMVASTATIN
     Dosage: 20 MILLIGRAM DAILY; 1DD1, THERAPY START DATE: ASKED BUT UNKNOWN, THERAPY END DATE : ASKED BUT UNKNOW
  2. ACETYLSALICYLZUUR TABLET  80MG / BRAND NAME NOT SPECIFIED [Concomitant]
     Active Substance: ASPIRIN
     Dosage: 80 MILLIGRAM DAILY; 1DD1, THERAPY START DATE: ASKED BUT UNKNOWN, THERAPY END DATE : ASKED BUT UNKNOW
  3. METOPROLOL TABLET MGA 25MG (SUCCINAAT) / BRAND NAME NOT SPECIFIED [Concomitant]
     Active Substance: METOPROLOL SUCCINATE
     Dosage: 1DD1, THERAPY START DATE: ASKED BUT UNKNOWN, THERAPY END DATE : ASKED BUT UNKNOWN
  4. LEVOTHYROXINE CAPSULE 75UG / BRAND NAME NOT SPECIFIED [Concomitant]
     Active Substance: LEVOTHYROXINE
     Dosage: 75 MICROGRAM DAILY; 1DD1, THERAPY START DATE: ASKED BUT UNKNOWN, THERAPY END DATE : ASKED BUT UNKNOW
  5. IBANDRONINEZUUR TABLET 150MG / BRAND NAME NOT SPECIFIED [Suspect]
     Active Substance: IBANDRONATE SODIUM
     Indication: OSTEOPOROSIS
     Dosage: 1X PER MONTH, UNIT DOSE: 1 DOSAGE FORMS
     Route: 065
     Dates: start: 20200603, end: 20200722
  6. MORFINE DRANK 2MG/ML (SULFAAT) / BRAND NAME NOT SPECIFIED [Concomitant]
     Active Substance: MORPHINE SULFATE
     Dosage: 3DD 2.5ML, UNIT DOSE: 2.5ML, THERAPY START DATE: ASKED BUT UNKNOWN, THERAPY END DATE : ASKED BUT UNK
  7. CALCIUMCARB/COLECALC TAB 1,25G/800IE (500MG CA) / BRAND NAME NOT SPECI [Concomitant]
     Active Substance: CALCIUM CARBONATE\VITAMIN D
     Dosage: 1 DOSAGE FORMS DAILY; 1DD1, THERAPY START DATE: ASKED BUT UNKNOWN, THERAPY END DATE : ASKED BUT UNKN
  8. MACROGOL [Concomitant]
     Active Substance: POLYETHYLENE GLYCOLS
     Dosage: ZN 2DD1, UNIT DOSE: 1 DOSAGE FORMS, THERAPY START DATE: ASKED BUT UNKNOWN, THERAPY END DATE : ASKED
  9. ISOSORBIDEMONONITRAAT TABLET MGA 60MG / BRAND NAME NOT SPECIFIED [Concomitant]
     Active Substance: ISOSORBIDE MONONITRATE
     Dosage: 1DD2, UNIT DOSE: 120 MG, THERAPY START DATE: ASKED BUT UNKNOWN, THERAPY END DATE : ASKED BUT UNKNOWN
  10. PANTOPRAZOL TABLET MSR 20MG / BRAND NAME NOT SPECIFIED [Concomitant]
     Active Substance: PANTOPRAZOLE
     Dosage: 2DD1, UNIT DOSE: 20 MG, THERAPY START DATE: ASKED BUT UNKNOWN, THERAPY END DATE : ASKED BUT UNKNOWN
  11. PREDNISOLON TABLET  5MG / BRAND NAME NOT SPECIFIED [Concomitant]
     Active Substance: PREDNISOLONE
     Dosage: 7.5 MILLIGRAM DAILY; 1DD 7.5MG, THERAPY START DATE: ASKED BUT UNKNOWN, THERAPY END DATE : ASKED BUT
  12. METOCLOPRAMIDE TABLET 10MG / BRAND NAME NOT SPECIFIED [Concomitant]
     Active Substance: METOCLOPRAMIDE
     Dosage: 30 MILLIGRAM DAILY; 3DD1, THERAPY START DATE: ASKED BUT UNKNOWN, THERAPY END DATE : ASKED BUT UNKNOW

REACTIONS (2)
  - Oesophageal candidiasis [Recovering/Resolving]
  - Gastrointestinal mucosal exfoliation [Recovering/Resolving]
